FAERS Safety Report 25798792 (Version 1)
Quarter: 2025Q3

REPORT INFORMATION
  Report Type: Other
  Country: EU (occurrence: EU)
  Receive Date: 20250913
  Receipt Date: 20250913
  Transmission Date: 20251020
  Serious: Yes (Hospitalization)
  Sender: ZYDUS PHARM
  Company Number: None

PATIENT

DRUGS (2)
  1. VENLAFAXINE [Suspect]
     Active Substance: VENLAFAXINE HYDROCHLORIDE
     Indication: Adjustment disorder with depressed mood
     Route: 048
     Dates: start: 20250804, end: 20250818
  2. OXAZEPAM [Concomitant]
     Active Substance: OXAZEPAM
     Indication: Adjustment disorder with depressed mood
     Route: 048
     Dates: start: 202508, end: 20250818

REACTIONS (2)
  - Suicide attempt [Recovered/Resolved]
  - Adverse reaction [Recovered/Resolved]

NARRATIVE: CASE EVENT DATE: 20250801
